FAERS Safety Report 19455196 (Version 1)
Quarter: 2021Q2

REPORT INFORMATION
  Report Type: Spontaneous
  Country: US (occurrence: US)
  Receive Date: 20210623
  Receipt Date: 20210623
  Transmission Date: 20210717
  Serious: Yes (Other)
  Sender: FDA-Public Use
  Company Number: US-009507513-2106USA004679

PATIENT
  Age: 59 Year
  Sex: Male

DRUGS (4)
  1. KEYTRUDA [Suspect]
     Active Substance: PEMBROLIZUMAB
     Indication: METASTASES TO PERITONEUM
  2. KEYTRUDA [Suspect]
     Active Substance: PEMBROLIZUMAB
     Indication: GASTROINTESTINAL CARCINOMA
     Dosage: UNK
  3. BINTRAFUSP ALFA. [Suspect]
     Active Substance: BINTRAFUSP ALFA
     Indication: GASTROINTESTINAL CARCINOMA
     Dosage: 1200 MG EVREY 2 WEEKS
     Route: 042
  4. BINTRAFUSP ALFA. [Suspect]
     Active Substance: BINTRAFUSP ALFA
     Indication: METASTASES TO PERITONEUM

REACTIONS (1)
  - Pemphigoid [Recovered/Resolved]
